FAERS Safety Report 10896295 (Version 1)
Quarter: 2015Q1

REPORT INFORMATION
  Report Type: Spontaneous
  Country: US (occurrence: US)
  Receive Date: 20150309
  Receipt Date: 20150309
  Transmission Date: 20150721
  Serious: No
  Sender: FDA-Public Use
  Company Number: US-009507513-1503USA003789

PATIENT
  Sex: Female

DRUGS (7)
  1. REBETOL [Suspect]
     Active Substance: RIBAVIRIN
     Indication: CHRONIC HEPATITIS C
     Dosage: DAILY DOSE 800 MG (800 MG, 1 IN 1 D)
     Route: 065
     Dates: start: 20110805
  2. CYCLOSPORINE. [Concomitant]
     Active Substance: CYCLOSPORINE
     Dosage: UNK
  3. PEGASYS [Suspect]
     Active Substance: PEGINTERFERON ALFA-2A
     Indication: CHRONIC HEPATITIS C
     Dosage: 135 UG, 1 IN 1 WEEK
     Route: 065
     Dates: start: 20110805
  4. REBETOL [Suspect]
     Active Substance: RIBAVIRIN
     Dosage: DAILY DOSE 400 MG (400 MG, 1 IN 1 D)
     Route: 065
     Dates: start: 20120418, end: 20120803
  5. PROGRAF [Concomitant]
     Active Substance: TACROLIMUS\TACROLIMUS ANHYDROUS
     Dosage: UNK
  6. PEGASYS [Suspect]
     Active Substance: PEGINTERFERON ALFA-2A
     Dosage: 180UG, 1 IN 1 WEEK
     Route: 065
     Dates: start: 20110826, end: 20120803
  7. VICTRELIS [Suspect]
     Active Substance: BOCEPREVIR
     Indication: CHRONIC HEPATITIS C
     Dosage: DAILY DOSE 3 IN 1 D
     Route: 065
     Dates: start: 20110907, end: 20120803

REACTIONS (8)
  - Renal impairment [Unknown]
  - Haemoglobin decreased [Unknown]
  - Anaemia [Unknown]
  - Ascites [Unknown]
  - Red blood cell count decreased [Unknown]
  - Hepatic enzyme increased [Unknown]
  - White blood cell count decreased [Unknown]
  - Nausea [Unknown]
